FAERS Safety Report 7319979-3 (Version None)
Quarter: 2011Q1

REPORT INFORMATION
  Report Type: 
  Country: None (occurrence: None)
  Receive Date: 20110228
  Receipt Date: 20110224
  Transmission Date: 20110831
  Serious: Yes (Death)
  Sender: FDA-Public Use
  Company Number: PHHY2011AR15473

PATIENT
  Sex: Male

DRUGS (1)
  1. EXFORGE [Suspect]
     Indication: BLOOD PRESSURE
     Dosage: 320 MG VALS AND 10 MG AMLO
     Route: 048

REACTIONS (1)
  - DEATH [None]
